FAERS Safety Report 7921517-9 (Version None)
Quarter: 2011Q4

REPORT INFORMATION
  Report Type: 
  Country: None (occurrence: None)
  Receive Date: 20111117
  Receipt Date: 20110819
  Transmission Date: 20120403
  Serious: No
  Sender: FDA-Public Use
  Company Number: US-MYLANLABS-2011S1015460

PATIENT
  Age: 72 Year
  Sex: Female
  Weight: 53.52 kg

DRUGS (5)
  1. TRIAMTERENE AND HYDROCHLOROTHIAZIDE [Suspect]
     Dates: start: 20110427, end: 20110725
  2. TRIAMTERENE AND HYDROCHLOROTHIAZIDE [Suspect]
     Indication: HYPERTENSION
     Dates: start: 20110427, end: 20110725
  3. TRIAMTERENE AND HYDROCHLOROTHIAZIDE [Suspect]
     Dates: start: 20110427, end: 20110725
  4. LEVOTHYROXINE SODIUM [Concomitant]
     Indication: THYROID DISORDER
  5. TRIAMTERENE AND HYDROCHLOROTHIAZIDE [Suspect]
     Indication: OEDEMA
     Dates: start: 20110427, end: 20110725

REACTIONS (5)
  - URINE OUTPUT DECREASED [None]
  - MICTURITION DISORDER [None]
  - BLOOD PRESSURE DIASTOLIC INCREASED [None]
  - DRUG EFFECT DECREASED [None]
  - OEDEMA [None]
